APPROVED DRUG PRODUCT: ZADITOR
Active Ingredient: KETOTIFEN FUMARATE
Strength: EQ 0.025% BASE
Dosage Form/Route: SOLUTION/DROPS;OPHTHALMIC
Application: A077200 | Product #001
Applicant: ALCON PHARMACEUTICALS LTD
Approved: Sep 2, 2008 | RLD: No | RS: Yes | Type: OTC